FAERS Safety Report 12784110 (Version 6)
Quarter: 2017Q4

REPORT INFORMATION
  Report Type: Spontaneous
  Country: US (occurrence: US)
  Receive Date: 20160927
  Receipt Date: 20171004
  Transmission Date: 20180320
  Serious: Yes (Other)
  Sender: FDA-Public Use
  Company Number: US-GLAXOSMITHKLINE-US2016139340

PATIENT
  Age: 49 Year
  Sex: Female
  Weight: 87.53 kg

DRUGS (13)
  1. AMBIEN [Concomitant]
     Active Substance: ZOLPIDEM TARTRATE
  2. LAMICTAL XR [Suspect]
     Active Substance: LAMOTRIGINE
     Indication: PRODUCT USED FOR UNKNOWN INDICATION
     Dosage: UNK
  3. OXYMORPHONE [Concomitant]
     Active Substance: OXYMORPHONE
  4. PHENERGAN [Concomitant]
     Active Substance: PROMETHAZINE HYDROCHLORIDE
  5. LAMICTAL [Suspect]
     Active Substance: LAMOTRIGINE
     Indication: TEMPORAL LOBE EPILEPSY
     Dosage: 25 MG, QOD
     Route: 048
     Dates: start: 20160909, end: 20160922
  6. HYDROCODONE [Concomitant]
     Active Substance: HYDROCODONE
  7. FIORINAL WITH CODEINE [Concomitant]
     Active Substance: ASPIRIN\BUTALBITAL\CAFFEINE\CODEINE PHOSPHATE
  8. WELLBUTRIN [Concomitant]
     Active Substance: BUPROPION HYDROCHLORIDE
  9. KEPPRA XR [Suspect]
     Active Substance: LEVETIRACETAM
     Indication: TEMPORAL LOBE EPILEPSY
     Dosage: UNK
  10. CLONOPIN [Suspect]
     Active Substance: CLONAZEPAM
     Indication: TEMPORAL LOBE EPILEPSY
     Dosage: UNK
  11. TRAZODONE [Concomitant]
     Active Substance: TRAZODONE HYDROCHLORIDE
  12. SKELAXIN [Concomitant]
     Active Substance: METAXALONE
  13. PROZAC [Concomitant]
     Active Substance: FLUOXETINE HYDROCHLORIDE

REACTIONS (14)
  - Urine output decreased [Not Recovered/Not Resolved]
  - Neuritis [Not Recovered/Not Resolved]
  - Neurogenic bladder [Not Recovered/Not Resolved]
  - Back pain [Not Recovered/Not Resolved]
  - Insomnia [Recovering/Resolving]
  - Drug ineffective [Unknown]
  - Pain in extremity [Not Recovered/Not Resolved]
  - Blood pressure increased [Unknown]
  - Swelling [Unknown]
  - Dysuria [Not Recovered/Not Resolved]
  - Hypersomnia [Recovering/Resolving]
  - Weight increased [Not Recovered/Not Resolved]
  - Vomiting [Unknown]
  - Gait inability [Unknown]

NARRATIVE: CASE EVENT DATE: 20160910
